FAERS Safety Report 25334354 (Version 1)
Quarter: 2025Q2

REPORT INFORMATION
  Report Type: Spontaneous
  Country: US (occurrence: US)
  Receive Date: 20250520
  Receipt Date: 20250520
  Transmission Date: 20250717
  Serious: No
  Sender: AZURITY PHARMACEUTICALS
  Company Number: US-AZURITY PHARMACEUTICALS, INC.-AZR202409-000820

PATIENT
  Sex: Male

DRUGS (1)
  1. TESTOSTERONE CYPIONATE [Suspect]
     Active Substance: TESTOSTERONE CYPIONATE
     Indication: Product used for unknown indication
     Route: 065

REACTIONS (6)
  - Ill-defined disorder [Unknown]
  - Asthenia [Unknown]
  - Apathy [Unknown]
  - Lethargy [Unknown]
  - Blood testosterone decreased [Unknown]
  - Loss of libido [Unknown]
